FAERS Safety Report 8989133 (Version 1)
Quarter: 2012Q4

REPORT INFORMATION
  Report Type: 
  Country: US (occurrence: US)
  Receive Date: 20121228
  Receipt Date: 20121228
  Transmission Date: 20130627
  Serious: Yes (Other)
  Sender: FDA-Public Use
  Company Number: PHEH2009US17749

PATIENT
  Age: 55 Year
  Sex: Male

DRUGS (4)
  1. GLEEVEC [Suspect]
     Indication: CHRONIC MYELOID LEUKAEMIA (IN REMISSION)
     Dosage: 400 mg daily
     Route: 048
     Dates: start: 20060920
  2. GLEEVEC [Suspect]
     Dosage: 400 mg, QD
     Route: 048
  3. CITALOPRAM HYDROBROMIDE [Concomitant]
     Dosage: 40 mg,daily
     Route: 048
  4. VYTORIN [Concomitant]
     Dosage: UNK

REACTIONS (5)
  - Transient ischaemic attack [Unknown]
  - Memory impairment [Unknown]
  - Vomiting [Not Recovered/Not Resolved]
  - Muscle spasms [Not Recovered/Not Resolved]
  - Nausea [Not Recovered/Not Resolved]
